FAERS Safety Report 23318988 (Version 1)
Quarter: 2023Q4

REPORT INFORMATION
  Report Type: Spontaneous
  Country: GB (occurrence: GB)
  Receive Date: 20231220
  Receipt Date: 20231220
  Transmission Date: 20240109
  Serious: Yes (Disabling)
  Sender: FDA-Public Use
  Company Number: None

PATIENT
  Age: 47 Year
  Weight: 96 kg

DRUGS (7)
  1. VENLAFAXINE [Suspect]
     Active Substance: VENLAFAXINE HYDROCHLORIDE
     Route: 065
     Dates: start: 20230908, end: 20231128
  2. MIRTAZAPINE [Concomitant]
     Active Substance: MIRTAZAPINE
     Dosage: ONE AT NIGHT
     Dates: start: 20220808, end: 20231128
  3. ESTRADIOL [Concomitant]
     Active Substance: ESTRADIOL
     Dosage: APPLY
     Dates: start: 20230614
  4. LEVOTHYROXINE [Concomitant]
     Active Substance: LEVOTHYROXINE
     Dosage: EACH MORNING
     Dates: start: 20220808
  5. PROGESTERONE [Concomitant]
     Active Substance: PROGESTERONE
     Dates: start: 20230104
  6. PROMETHAZINE HYDROCHLORIDE [Concomitant]
     Active Substance: PROMETHAZINE HYDROCHLORIDE
     Dosage: AT NIGHT
     Dates: start: 20230915, end: 20231128
  7. ZOPICLONE [Concomitant]
     Active Substance: ZOPICLONE
     Dosage: NOCTE,USE SPARINGLY-MAY CAUSE DEPENDENCE
     Dates: start: 20230908, end: 20231006

REACTIONS (2)
  - Serotonin syndrome [Recovered/Resolved]
  - Tic [Unknown]
